FAERS Safety Report 9289970 (Version 1)
Quarter: 2013Q2

REPORT INFORMATION
  Report Type: Report from Study
  Country: US (occurrence: US)
  Receive Date: 20130515
  Receipt Date: 20130515
  Transmission Date: 20140414
  Serious: Yes (Life-Threatening, Other)
  Sender: FDA-Public Use
  Company Number: US-JNJFOC-20130505921

PATIENT
  Age: 16 Year
  Sex: Female
  Weight: 63.8 kg

DRUGS (8)
  1. REMICADE [Suspect]
     Indication: CROHN^S DISEASE
     Route: 042
     Dates: start: 20021105
  2. PREDNISONE [Suspect]
     Indication: CROHN^S DISEASE
     Route: 065
     Dates: end: 20130402
  3. 5-ASA [Concomitant]
     Route: 048
  4. PRILOSEC [Concomitant]
     Route: 065
  5. MULTIVITAMINS WITH IRON [Concomitant]
     Route: 065
  6. VITAMIN D [Concomitant]
     Route: 065
  7. VITAMIN B12 [Concomitant]
     Route: 065
  8. CALCIUM CARBONATE [Concomitant]
     Route: 065

REACTIONS (1)
  - Suicide attempt [Recovered/Resolved]
